FAERS Safety Report 7564335-6 (Version None)
Quarter: 2011Q2

REPORT INFORMATION
  Report Type: 
  Country: None (occurrence: None)
  Receive Date: 20110622
  Receipt Date: 20110609
  Transmission Date: 20111010
  Serious: Yes (Other)
  Sender: FDA-Public Use
  Company Number: PHHY2011FR44524

PATIENT
  Sex: Male
  Weight: 100 kg

DRUGS (4)
  1. NISIS [Concomitant]
     Indication: HYPERTENSION
     Dosage: 80 MG, UNK
     Dates: start: 19970101
  2. GLEEVEC [Suspect]
     Indication: CHRONIC MYELOID LEUKAEMIA
     Dosage: 400 MG, QD
     Dates: start: 20020701
  3. ALDALIX [Concomitant]
     Dates: start: 19970101
  4. FENOFIBRATE [Concomitant]
     Dates: start: 19970101

REACTIONS (2)
  - EYE INFECTION TOXOPLASMAL [None]
  - TOXOPLASMOSIS [None]
